FAERS Safety Report 5229953-9 (Version None)
Quarter: 2007Q1

REPORT INFORMATION
  Report Type: 
  Country: None (occurrence: None)
  Receive Date: 20070206
  Receipt Date: 20060724
  Transmission Date: 20070707
  Serious: No
  Sender: FDA-Public Use
  Company Number: US-GLAXOSMITHKLINE-A0613313A

PATIENT
  Age: 29 Year
  Sex: Female

DRUGS (3)
  1. PAXIL [Suspect]
     Indication: PANIC DISORDER
     Dosage: 25MG PER DAY
     Route: 048
  2. PAXIL CR [Suspect]
     Indication: PANIC DISORDER
  3. PLAQUENIL [Concomitant]

REACTIONS (9)
  - DRUG EXPOSURE DURING PREGNANCY [None]
  - DRUG WITHDRAWAL SYNDROME [None]
  - EMOTIONAL DISTRESS [None]
  - EYE MOVEMENT DISORDER [None]
  - FLUID RETENTION [None]
  - INSOMNIA [None]
  - LISTLESS [None]
  - PALPITATIONS [None]
  - VERTIGO [None]
